FAERS Safety Report 17218311 (Version 1)
Quarter: 2019Q4

REPORT INFORMATION
  Report Type: Spontaneous
  Country: GB (occurrence: GB)
  Receive Date: 20191231
  Receipt Date: 20191231
  Transmission Date: 20200122
  Serious: Yes (Disabling)
  Sender: FDA-Public Use
  Company Number: GB-TEVA-2019-GB-1159584

PATIENT
  Age: 49 Year
  Sex: Female
  Weight: 89.81 kg

DRUGS (6)
  1. AMITRIPTYLINE [Concomitant]
     Active Substance: AMITRIPTYLINE
  2. BUPRENORPHINE. [Concomitant]
     Active Substance: BUPRENORPHINE
     Dosage: 35 MICROGRAM
  3. COCODAMOL [Concomitant]
     Active Substance: ACETAMINOPHEN\CODEINE PHOSPHATE
  4. NITROFURANTOIN. [Suspect]
     Active Substance: NITROFURANTOIN
     Indication: URINARY TRACT INFECTION
     Route: 048
  5. PROPRANOLOL [Concomitant]
     Active Substance: PROPRANOLOL HYDROCHLORIDE
  6. GABAPENTIN. [Concomitant]
     Active Substance: GABAPENTIN

REACTIONS (15)
  - Pain in jaw [Recovered/Resolved with Sequelae]
  - Drug ineffective [Unknown]
  - Confusional state [Recovered/Resolved with Sequelae]
  - Abdominal pain [Recovered/Resolved with Sequelae]
  - Asthenia [Recovered/Resolved with Sequelae]
  - Asthenia [Unknown]
  - Arthralgia [Recovered/Resolved with Sequelae]
  - Joint swelling [Recovered/Resolved with Sequelae]
  - Feeling hot [Unknown]
  - Pyrexia [Recovered/Resolved with Sequelae]
  - Headache [Recovered/Resolved with Sequelae]
  - Urinary tract infection [Recovered/Resolved with Sequelae]
  - Ear pain [Recovered/Resolved with Sequelae]
  - Vision blurred [Recovered/Resolved with Sequelae]
  - Swelling face [Recovered/Resolved with Sequelae]
